FAERS Safety Report 5423081-5 (Version None)
Quarter: 2007Q3

REPORT INFORMATION
  Report Type: 
  Country: None (occurrence: None)
  Receive Date: 20070822
  Receipt Date: 20070813
  Transmission Date: 20080115
  Serious: Yes (Hospitalization)
  Sender: FDA-Public Use
  Company Number: JP-ABBOTT-07P-087-0377919-00

PATIENT
  Sex: Male

DRUGS (14)
  1. KALETRA [Suspect]
     Indication: HIV INFECTION
     Route: 048
     Dates: start: 20060926, end: 20060928
  2. KALETRA [Suspect]
     Indication: HIV INFECTION
     Route: 048
     Dates: start: 20061027
  3. ZIDOVUDINE [Suspect]
     Indication: HIV INFECTION
     Route: 048
     Dates: start: 20060401, end: 20060925
  4. DIDANOSINE [Suspect]
     Indication: HIV INFECTION
     Route: 048
     Dates: start: 20060401, end: 20060925
  5. EFAVIRENZ [Suspect]
     Indication: HIV INFECTION
     Route: 048
     Dates: start: 20060401, end: 20060925
  6. ABACAVIR W/LAMIVUDINE [Suspect]
     Indication: HIV INFECTION
     Route: 048
     Dates: start: 20060926, end: 20060928
  7. LAMIVUDINE [Concomitant]
     Indication: HIV INFECTION
     Route: 048
     Dates: start: 20061027
  8. TENOFOVIR DISOPROXIL FUMARATE [Concomitant]
     Indication: HIV INFECTION
     Route: 048
     Dates: start: 20061027
  9. URSODIOL [Concomitant]
     Indication: HEPATITIS B
     Route: 048
     Dates: start: 20060401, end: 20060928
  10. ASCORBIC ACID/CALCIUM PANTOTHENATE [Concomitant]
     Indication: HEPATITIS B
     Route: 048
     Dates: start: 20060401, end: 20060928
  11. DIGESTIVE ENZYME PREPARATIONS [Concomitant]
     Indication: GASTRITIS
     Route: 048
     Dates: start: 20060401, end: 20060928
  12. BROTIZOLAM [Concomitant]
     Indication: INSOMNIA
     Route: 048
     Dates: start: 20060401, end: 20060928
  13. FAMOTIDINE [Concomitant]
     Indication: PROPHYLAXIS AGAINST GASTROINTESTINAL ULCER
     Route: 048
     Dates: start: 20061101
  14. MAGNESIUM OXIDE [Concomitant]
     Indication: CONSTIPATION PROPHYLAXIS
     Route: 048
     Dates: start: 20061031

REACTIONS (3)
  - ASCITES [None]
  - HEPATITIS FULMINANT [None]
  - LIVER DISORDER [None]
